FAERS Safety Report 4567561-3 (Version None)
Quarter: 2005Q1

REPORT INFORMATION
  Report Type: 
  Country: None (occurrence: None)
  Receive Date: 20050127
  Receipt Date: 20050113
  Transmission Date: 20050727
  Serious: Yes (Hospitalization)
  Sender: FDA-Public Use
  Company Number: FR-ROCHE-362217

PATIENT
  Age: 67 Year
  Sex: Male

DRUGS (11)
  1. TOLCAPONE (TOLCAPONE) [Suspect]
     Indication: PARKINSON'S DISEASE
     Dosage: 100 MG; 3 TIMES A DAY; ORAL
     Route: 048
     Dates: start: 20011213
  2. MODOPAR 125 [Concomitant]
  3. MODOPAR 125 DISPERSIBLE [Concomitant]
  4. MODOPAR LP 125 [Concomitant]
  5. CELANCE [Concomitant]
  6. SEROPAM [Concomitant]
  7. ASPEGIC 250 [Concomitant]
  8. XANAX [Concomitant]
  9. PROSCAR [Concomitant]
  10. MANTADIX [Concomitant]
  11. NITRODERM [Concomitant]

REACTIONS (4)
  - HAEMATURIA [None]
  - PROSTATIC ADENOMA [None]
  - TOOTH DISORDER [None]
  - URINARY RETENTION [None]
